FAERS Safety Report 22063390 (Version 1)
Quarter: 2023Q1

REPORT INFORMATION
  Report Type: Spontaneous
  Country: FR (occurrence: FR)
  Receive Date: 20230306
  Receipt Date: 20230306
  Transmission Date: 20230417
  Serious: Yes (Hospitalization, Other)
  Sender: FDA-Public Use
  Company Number: None

PATIENT
  Sex: Female

DRUGS (4)
  1. DRONABINOL [Suspect]
     Active Substance: DRONABINOL
     Indication: Neuralgia
     Dosage: 7.5 MILLIGRAM, QD (EVERY 1 DAY), (DOSE REDUCED)
     Route: 048
  2. CARBAMAZEPINE [Concomitant]
     Active Substance: CARBAMAZEPINE
     Indication: Product used for unknown indication
     Dosage: UNK
     Route: 065
  3. Potassium Hydrogen Tartrate, Sodium Hydrogen Carbonate [Concomitant]
     Indication: Product used for unknown indication
     Dosage: UNK
     Route: 065
  4. PREGABALIN [Concomitant]
     Active Substance: PREGABALIN
     Indication: Product used for unknown indication
     Dosage: UNK
     Route: 065

REACTIONS (1)
  - Ischaemic stroke [Recovered/Resolved]
